FAERS Safety Report 7511471-6 (Version None)
Quarter: 2011Q2

REPORT INFORMATION
  Report Type: 
  Country: None (occurrence: None)
  Receive Date: 20110531
  Receipt Date: 20110524
  Transmission Date: 20111010
  Serious: Yes (Other)
  Sender: FDA-Public Use
  Company Number: US-PERRIGO-11US003804

PATIENT
  Sex: Female
  Weight: 15.42 kg

DRUGS (3)
  1. CETIRIZINE HCL [Suspect]
     Dosage: 2.5 ML, SINGLE, IN THE AFTERNOON
     Route: 048
     Dates: start: 20110501, end: 20110501
  2. VITAMINS NOS [Concomitant]
     Indication: PRODUCT USED FOR UNKNOWN INDICATION
     Dosage: UNK
     Route: 048
  3. CETIRIZINE HCL [Suspect]
     Indication: SEASONAL ALLERGY
     Dosage: 2.5 ML, SINGLE, BEFORE BED
     Route: 048
     Dates: start: 20110429, end: 20110429

REACTIONS (1)
  - ABNORMAL BEHAVIOUR [None]
